FAERS Safety Report 21507571 (Version 3)
Quarter: 2025Q4

REPORT INFORMATION
  Report Type: Spontaneous
  Country: CA (occurrence: CA)
  Receive Date: 20221026
  Receipt Date: 20251024
  Transmission Date: 20260117
  Serious: Yes (Hospitalization, Other)
  Sender: VELOXIS PHARMACEUTICALS
  Company Number: CA-VELOXIS PHARMACEUTICALS, INC.-2022-VEL-00703

PATIENT
  Age: 31 Year
  Sex: Male

DRUGS (5)
  1. TACROLIMUS [Suspect]
     Active Substance: TACROLIMUS
     Indication: Renal transplant
     Dosage: 11 MILLIGRAM, QD
  2. TACROLIMUS [Suspect]
     Active Substance: TACROLIMUS
     Dosage: 13 MILLIGRAM, QD
  3. TACROLIMUS [Suspect]
     Active Substance: TACROLIMUS
     Dosage: 4 MILLIGRAM, QD
  4. TACROLIMUS [Suspect]
     Active Substance: TACROLIMUS
     Dosage: 4.75 MILLIGRAM, QD
  5. TACROLIMUS [Suspect]
     Active Substance: TACROLIMUS
     Dosage: 8 MILLIGRAM, QD

REACTIONS (3)
  - Injection site haemorrhage [Unknown]
  - Immunodeficiency [Unknown]
  - Illness [Unknown]
